FAERS Safety Report 9482802 (Version 9)
Quarter: 2013Q4

REPORT INFORMATION
  Report Type: Report from Study
  Country: VI (occurrence: VI)
  Receive Date: 20130828
  Receipt Date: 20131121
  Transmission Date: 20140711
  Serious: No
  Sender: FDA-Public Use
  Company Number: US-VERTEX PHARMACEUTICALS INC-2013-009062

PATIENT
  Age: 53 Year
  Sex: Female
  Weight: 70.75 kg

DRUGS (6)
  1. VX-950 (TELAPREVIR) [Suspect]
     Indication: HEPATITIS C
     Dosage: 750 MG, TID
     Route: 048
     Dates: start: 20130819, end: 20131016
  2. PEGASYS [Suspect]
     Indication: HEPATITIS C
     Dosage: 180 ?G, QW
     Route: 058
     Dates: start: 20130819
  3. PEGASYS [Suspect]
     Dosage: 135 ?G, QW
     Route: 058
     Dates: start: 201310
  4. RIBAVIRIN [Suspect]
     Indication: HEPATITIS C
     Dosage: 400 MG AM AND 600 MG PM
     Route: 048
     Dates: start: 20130819
  5. RIBAVIRIN [Suspect]
     Dosage: 400 MG AM, 200 MG PM
     Route: 048
     Dates: start: 201310
  6. ANTIHYPERTENSIVES [Concomitant]
     Indication: HYPERTENSION

REACTIONS (26)
  - Miliaria [Not Recovered/Not Resolved]
  - Decreased appetite [Unknown]
  - Dry mouth [Unknown]
  - Weight decreased [Not Recovered/Not Resolved]
  - Depression [Not Recovered/Not Resolved]
  - Eye disorder [Unknown]
  - Constipation [Unknown]
  - Oral discomfort [Not Recovered/Not Resolved]
  - Trichorrhexis [Recovered/Resolved]
  - Oral discomfort [Unknown]
  - Vision blurred [Recovered/Resolved]
  - Dry eye [Recovered/Resolved]
  - Dyspnoea [Unknown]
  - White blood cell count decreased [Unknown]
  - Fatigue [Unknown]
  - Eye swelling [Recovered/Resolved]
  - Swelling face [Unknown]
  - Dysgeusia [Not Recovered/Not Resolved]
  - Rash pruritic [Recovered/Resolved]
  - Nausea [Unknown]
  - Platelet count decreased [Unknown]
  - Red blood cell count decreased [Unknown]
  - Anorectal discomfort [Unknown]
  - Vomiting [Unknown]
  - Pruritus [Recovered/Resolved]
  - Anal pruritus [Unknown]
